FAERS Safety Report 8851893 (Version 1)
Quarter: 2012Q4

REPORT INFORMATION
  Report Type: 
  Country: US (occurrence: US)
  Receive Date: 20121022
  Receipt Date: 20121022
  Transmission Date: 20130627
  Serious: No
  Sender: FDA-Public Use
  Company Number: US-PFIZER INC-2012260575

PATIENT
  Sex: Male

DRUGS (1)
  1. EFFEXOR [Suspect]
     Dosage: UNK

REACTIONS (5)
  - Withdrawal syndrome [Unknown]
  - Personality change [Unknown]
  - Feeling abnormal [Unknown]
  - Anger [Unknown]
  - Insomnia [Unknown]
